FAERS Safety Report 24146649 (Version 1)
Quarter: 2024Q3

REPORT INFORMATION
  Report Type: Spontaneous
  Country: US (occurrence: US)
  Receive Date: 20240729
  Receipt Date: 20240729
  Transmission Date: 20241017
  Serious: Yes (Other)
  Sender: VIFOR
  Company Number: US-Vifor (International) Inc.-VIT-2024-06591

PATIENT
  Age: 57 Year
  Sex: Female
  Weight: 77.7 kg

DRUGS (1)
  1. MIRCERA [Suspect]
     Active Substance: METHOXY POLYETHYLENE GLYCOL-EPOETIN BETA
     Indication: Nephrogenic anaemia
     Route: 040
     Dates: start: 20240718, end: 20240718

REACTIONS (3)
  - Drug hypersensitivity [Unknown]
  - Cardiac flutter [Unknown]
  - Back pain [Unknown]

NARRATIVE: CASE EVENT DATE: 20240718
